FAERS Safety Report 4324278-8 (Version None)
Quarter: 2004Q1

REPORT INFORMATION
  Report Type: 
  Country: None (occurrence: None)
  Receive Date: 20040326
  Receipt Date: 20040116
  Transmission Date: 20041129
  Serious: No
  Sender: FDA-Public Use
  Company Number: US-GLAXOSMITHKLINE-A0494020A

PATIENT
  Age: 65 Year
  Sex: Female

DRUGS (9)
  1. ADVAIR DISKUS 100/50 [Suspect]
     Dosage: 1PUFF TWICE PER DAY
     Route: 055
     Dates: start: 20040109
  2. SINGULAIR [Concomitant]
     Route: 048
     Dates: start: 20040109
  3. COREG [Concomitant]
     Route: 048
     Dates: start: 20030923
  4. HYDRALAZINE HCL [Concomitant]
     Route: 048
     Dates: start: 20030915
  5. PREDNISONE [Concomitant]
     Route: 065
     Dates: start: 20031020
  6. PLAVIX [Concomitant]
     Route: 048
     Dates: start: 20031009
  7. NEXIUM [Concomitant]
     Route: 048
     Dates: start: 20030905
  8. ZOCOR [Concomitant]
     Route: 048
     Dates: start: 20030808
  9. ENDOCET [Concomitant]
     Route: 048
     Dates: start: 20040124

REACTIONS (1)
  - VAGINAL MYCOSIS [None]
